FAERS Safety Report 13053904 (Version 1)
Quarter: 2016Q4

REPORT INFORMATION
  Report Type: Spontaneous
  Country: US (occurrence: US)
  Receive Date: 20161222
  Receipt Date: 20161222
  Transmission Date: 20170207
  Serious: Yes (Disabling, Other)
  Sender: FDA-Public Use
  Company Number: None

PATIENT
  Age: 61 Year
  Sex: Male
  Weight: 74.91 kg

DRUGS (8)
  1. LITHOBID [Suspect]
     Active Substance: LITHIUM CARBONATE
     Indication: BIPOLAR DISORDER
     Dosage: 4 TIMES DAILY 2 PILLS AM 2 PILLS P.M. ORAL
     Route: 048
     Dates: start: 19810801, end: 20160919
  2. TYLENOL [Concomitant]
     Active Substance: ACETAMINOPHEN
  3. ATARAX [Concomitant]
     Active Substance: HYDROXYZINE\HYDROXYZINE HYDROCHLORIDE
  4. AMILORIDE HCL - HCTZ [Concomitant]
  5. LITHOBID [Suspect]
     Active Substance: LITHIUM CARBONATE
     Indication: BIPOLAR I DISORDER
     Dosage: 4 TIMES DAILY 2 PILLS AM 2 PILLS P.M. ORAL
     Route: 048
     Dates: start: 19810801, end: 20160919
  6. VITAMIN B12 [Concomitant]
     Active Substance: CYANOCOBALAMIN
  7. LUTEN [Concomitant]
  8. LECITHIN [Concomitant]
     Active Substance: LECITHIN

REACTIONS (5)
  - Cerebellar atrophy [None]
  - Nystagmus [None]
  - Impaired work ability [None]
  - Visual impairment [None]
  - Tremor [None]

NARRATIVE: CASE EVENT DATE: 20160516
